FAERS Safety Report 25209617 (Version 2)
Quarter: 2025Q3

REPORT INFORMATION
  Report Type: Spontaneous
  Country: US (occurrence: US)
  Receive Date: 20250417
  Receipt Date: 20250930
  Transmission Date: 20251021
  Serious: No
  Sender: SANOFI AVENTIS
  Company Number: US-SA-2025SA110735

PATIENT
  Age: 32 Year
  Sex: Male

DRUGS (3)
  1. DUPIXENT [Suspect]
     Active Substance: DUPILUMAB
     Indication: Eczema
     Route: 058
     Dates: start: 202502, end: 202502
  2. DUPIXENT [Suspect]
     Active Substance: DUPILUMAB
     Dosage: 300 MG, QOW
     Route: 058
     Dates: start: 2025, end: 20250328
  3. ENTYVIO [Concomitant]
     Active Substance: VEDOLIZUMAB

REACTIONS (11)
  - Eye discharge [Recovering/Resolving]
  - Condition aggravated [Recovering/Resolving]
  - Swelling of eyelid [Recovering/Resolving]
  - Ocular hyperaemia [Recovering/Resolving]
  - Dry eye [Recovering/Resolving]
  - Eczema [Not Recovered/Not Resolved]
  - Rash [Not Recovered/Not Resolved]
  - Pruritus [Not Recovered/Not Resolved]
  - Product dose omission issue [Not Recovered/Not Resolved]
  - Rebound effect [Not Recovered/Not Resolved]
  - Eye irritation [Recovering/Resolving]

NARRATIVE: CASE EVENT DATE: 20250101
